FAERS Safety Report 18624735 (Version 4)
Quarter: 2022Q4

REPORT INFORMATION
  Report Type: Spontaneous
  Country: US (occurrence: US)
  Receive Date: 20201216
  Receipt Date: 20221103
  Transmission Date: 20230113
  Serious: No
  Sender: FDA-Public Use
  Company Number: US-PFIZER INC-2020496725

PATIENT
  Age: 63 Year
  Sex: Male

DRUGS (3)
  1. INLYTA [Suspect]
     Active Substance: AXITINIB
     Indication: Renal cancer
     Dosage: 5 MG
  2. INLYTA [Suspect]
     Active Substance: AXITINIB
     Dosage: 5 MG
     Dates: start: 20210513
  3. INLYTA [Suspect]
     Active Substance: AXITINIB
     Dosage: 1 DF (OCCASIONALLY TAKES 1 PILL OF INLYTA INSTEAD OF 2 PER DAY)

REACTIONS (7)
  - Fatigue [Unknown]
  - Blood pressure increased [Unknown]
  - Asthenia [Unknown]
  - Back pain [Unknown]
  - Product dose omission issue [Unknown]
  - Dyspepsia [Unknown]
  - Asthenia [Unknown]
